FAERS Safety Report 15111698 (Version 1)
Quarter: 2018Q3

REPORT INFORMATION
  Report Type: Spontaneous
  Country: US (occurrence: US)
  Receive Date: 20180705
  Receipt Date: 20180705
  Transmission Date: 20181010
  Serious: Yes (Death)
  Sender: FDA-Public Use
  Company Number: US-ELI_LILLY_AND_COMPANY-US201807000610

PATIENT
  Sex: Male

DRUGS (1)
  1. GLUCAGON. [Suspect]
     Active Substance: GLUCAGON
     Indication: BLOOD GLUCOSE DECREASED
     Dosage: UNK, UNKNOWN
     Route: 065

REACTIONS (7)
  - Blood glucose decreased [Unknown]
  - Nonspecific reaction [Unknown]
  - Feeling drunk [Unknown]
  - Seizure [Unknown]
  - Hallucination [Unknown]
  - Dementia Alzheimer^s type [Fatal]
  - Blood glucose increased [Unknown]
